FAERS Safety Report 22603510 (Version 7)
Quarter: 2025Q1

REPORT INFORMATION
  Report Type: Report from Study
  Country: CA (occurrence: CA)
  Receive Date: 20230615
  Receipt Date: 20250313
  Transmission Date: 20250408
  Serious: Yes (Life-Threatening, Other)
  Sender: NOVARTIS
  Company Number: CA-002147023-NVSC2023CA136458

PATIENT
  Age: 59 Year
  Sex: Female

DRUGS (3)
  1. LETROZOLE [Suspect]
     Active Substance: LETROZOLE
     Indication: Product used for unknown indication
     Route: 065
  2. MORPHINE [Concomitant]
     Active Substance: MORPHINE
     Indication: Product used for unknown indication
     Route: 065
     Dates: start: 2023
  3. CELEBREX [Concomitant]
     Active Substance: CELECOXIB
     Indication: Product used for unknown indication
     Route: 065
     Dates: start: 2023

REACTIONS (5)
  - Terminal state [Unknown]
  - General physical health deterioration [Not Recovered/Not Resolved]
  - Pain [Unknown]
  - Abdominal discomfort [Recovering/Resolving]
  - Muscle spasms [Recovering/Resolving]
